FAERS Safety Report 10032032 (Version 1)
Quarter: 2014Q1

REPORT INFORMATION
  Report Type: Spontaneous
  Country: US (occurrence: US)
  Receive Date: 20140324
  Receipt Date: 20140324
  Transmission Date: 20141002
  Serious: Yes (Death, Hospitalization, Other)
  Sender: FDA-Public Use
  Company Number: US-BAXTER-2014BAX013395

PATIENT
  Age: 34 Year
  Sex: Male
  Weight: 172.52 kg

DRUGS (1)
  1. DIANEAL LOW CALCIUM [Suspect]
     Indication: PERITONEAL DIALYSIS
     Route: 033
     Dates: start: 201312, end: 20140310

REACTIONS (6)
  - Cardiomyopathy [Fatal]
  - Cardiac failure chronic [Fatal]
  - Withdrawal of life support [Fatal]
  - Cardiac failure [Fatal]
  - International normalised ratio increased [Unknown]
  - Systemic inflammatory response syndrome [Unknown]
